FAERS Safety Report 13088324 (Version 1)
Quarter: 2017Q1

REPORT INFORMATION
  Report Type: Spontaneous
  Country: US (occurrence: US)
  Receive Date: 20170104
  Receipt Date: 20170104
  Transmission Date: 20170428
  Serious: Yes (Disabling, Other)
  Sender: FDA-Public Use
  Company Number: None

PATIENT
  Age: 25 Year
  Sex: Male
  Weight: 69.75 kg

DRUGS (2)
  1. TESTOSTERONE CYPIONATE PERRIGO [Suspect]
     Active Substance: TESTOSTERONE CYPIONATE
     Indication: HORMONE REPLACEMENT THERAPY
     Dosage: ?          QUANTITY:3 INJECTION(S);?
     Route: 030
     Dates: start: 20161216, end: 20161225
  2. TEA [Concomitant]
     Active Substance: TEA LEAF

REACTIONS (3)
  - Panic attack [None]
  - Muscle disorder [None]
  - Blood oestrogen abnormal [None]

NARRATIVE: CASE EVENT DATE: 20161230
